FAERS Safety Report 6655239-1 (Version None)
Quarter: 2010Q1

REPORT INFORMATION
  Report Type: 
  Country: None (occurrence: None)
  Receive Date: 20100329
  Receipt Date: 20100316
  Transmission Date: 20100710
  Serious: Yes (Hospitalization)
  Sender: FDA-Public Use
  Company Number: US-ELI_LILLY_AND_COMPANY-US201003005711

PATIENT
  Sex: Female

DRUGS (11)
  1. FORTEO [Suspect]
     Indication: OSTEOPOROSIS
     Dosage: 20 UG, DAILY (1/D)
  2. LOVENOX [Concomitant]
     Dosage: 40 MG, DAILY (1/D)
  3. PROTONIX /01263201/ [Concomitant]
     Dosage: 40 MG, DAILY (1/D)
  4. SPIRIVA [Concomitant]
     Dosage: 18 UG, DAILY (1/D)
  5. MEVACOR [Concomitant]
     Dosage: 40 MG, DAILY (1/D)
  6. CARDIZEM [Concomitant]
     Dosage: 120 MG, DAILY (1/D)
  7. ADVAIR DISKUS 100/50 [Concomitant]
     Dosage: 500/50 D/F, 2/D
     Route: 055
  8. PERCOCET [Concomitant]
     Indication: PAIN
  9. ASPIRIN [Concomitant]
     Dosage: 325 MG, DAILY (1/D)
  10. METOPROLOL [Concomitant]
     Dosage: 12.5 MG, 2/D
  11. XOPENEX [Concomitant]
     Dosage: 125 MG, EVERY 6 HRS

REACTIONS (1)
  - ANKLE FRACTURE [None]
